FAERS Safety Report 5822485-6 (Version None)
Quarter: 2008Q3

REPORT INFORMATION
  Report Type: 
  Country: None (occurrence: None)
  Receive Date: 20080723
  Receipt Date: 20080723
  Transmission Date: 20090109
  Serious: No
  Sender: FDA-Public Use
  Company Number: None

PATIENT
  Age: 79 Year
  Sex: Male

DRUGS (2)
  1. ENDEAVOR DRUG-CORONARY STENT [Suspect]
     Indication: ANGINA PECTORIS
     Dates: start: 20080609, end: 20080609
  2. ENDEAVOR DRUG-CORONARY STENT [Suspect]
     Indication: CORONARY ARTERY DISEASE
     Dates: start: 20080609, end: 20080609

REACTIONS (1)
  - MEDICAL DEVICE COMPLICATION [None]
